FAERS Safety Report 23917775 (Version 3)
Quarter: 2024Q2

REPORT INFORMATION
  Report Type: Spontaneous
  Country: ZA (occurrence: ZA)
  Receive Date: 20240530
  Receipt Date: 20240626
  Transmission Date: 20240716
  Serious: Yes (Other)
  Sender: FDA-Public Use
  Company Number: ZA-HALEON-2177416

PATIENT
  Sex: Female

DRUGS (1)
  1. ACETAMINOPHEN\ASPIRIN\CAFFEINE [Suspect]
     Active Substance: ACETAMINOPHEN\ASPIRIN\CAFFEINE
     Indication: Product used for unknown indication

REACTIONS (5)
  - Gastric ulcer [Unknown]
  - Product counterfeit [Unknown]
  - Abdominal pain upper [Unknown]
  - Product complaint [Unknown]
  - Dyspepsia [Unknown]
